FAERS Safety Report 16193990 (Version 3)
Quarter: 2019Q2

REPORT INFORMATION
  Report Type: Spontaneous
  Country: GB (occurrence: GB)
  Receive Date: 20190413
  Receipt Date: 20190419
  Transmission Date: 20190711
  Serious: Yes (Other)
  Sender: FDA-Public Use
  Company Number: PHHY2019GB082173

PATIENT
  Age: 71 Year
  Sex: Male

DRUGS (5)
  1. LCZ696 [Suspect]
     Active Substance: SACUBITRIL\VALSARTAN
     Indication: ISCHAEMIC CARDIOMYOPATHY
     Dosage: 1 DF (49/51 MG), BID
     Route: 065
  2. MEXILETINE [Interacting]
     Active Substance: MEXILETINE
     Indication: CARDIAC FAILURE
  3. MEXILETINE [Interacting]
     Active Substance: MEXILETINE
     Indication: ISCHAEMIC CARDIOMYOPATHY
     Dosage: 200 MG, TID
     Route: 065
  4. BISOPROLOL [Suspect]
     Active Substance: BISOPROLOL
     Indication: ISCHAEMIC CARDIOMYOPATHY
     Dosage: 5 MG, QD
     Route: 065
  5. EPLERENONE. [Concomitant]
     Active Substance: EPLERENONE
     Indication: ISCHAEMIC CARDIOMYOPATHY
     Dosage: 50 MG, QD
     Route: 065

REACTIONS (5)
  - Ventricular tachycardia [Recovered/Resolved]
  - Drug interaction [Unknown]
  - Drug intolerance [Unknown]
  - Insomnia [Unknown]
  - Fatigue [Unknown]
